FAERS Safety Report 10728591 (Version 1)
Quarter: 2015Q1

REPORT INFORMATION
  Report Type: Spontaneous
  Country: US (occurrence: US)
  Receive Date: 20150122
  Receipt Date: 20150122
  Transmission Date: 20150721
  Serious: Yes (Hospitalization, Other)
  Sender: FDA-Public Use
  Company Number: US-009507513-1501USA006930

PATIENT
  Sex: Male

DRUGS (1)
  1. ASMANEX HFA [Suspect]
     Active Substance: MOMETASONE FUROATE
     Dosage: 220 MICROGRAM, FREQUENCY UNSPECIFIED

REACTIONS (4)
  - Nephrolithiasis [Unknown]
  - Syncope [Unknown]
  - Stent placement [Unknown]
  - Cataract [Unknown]
